FAERS Safety Report 26027230 (Version 2)
Quarter: 2025Q4

REPORT INFORMATION
  Report Type: Spontaneous
  Country: US (occurrence: US)
  Receive Date: 20251111
  Receipt Date: 20251119
  Transmission Date: 20260117
  Serious: No
  Sender: KARYOPHARM THERAPEUTICS
  Company Number: US-KARYOPHARM-2025KPT100928

PATIENT

DRUGS (43)
  1. SELINEXOR [Suspect]
     Active Substance: SELINEXOR
     Indication: Plasma cell myeloma
     Dosage: 60 MG WEEKLY
     Route: 048
     Dates: start: 20251029, end: 2025
  2. ACYCLOVIR [Concomitant]
     Active Substance: ACYCLOVIR
  3. ALDACTONE [Concomitant]
     Active Substance: SPIRONOLACTONE
  4. AMIODARONE [Concomitant]
     Active Substance: AMIODARONE
  5. ATIVAN [Concomitant]
     Active Substance: LORAZEPAM
  6. AMLODIPINE [Concomitant]
     Active Substance: AMLODIPINE BESYLATE
  7. AMITRIPTYLINE [Concomitant]
     Active Substance: AMITRIPTYLINE
  8. ATORVASTATIN [Concomitant]
     Active Substance: ATORVASTATIN
  9. BACTRIM DS [Concomitant]
     Active Substance: SULFAMETHOXAZOLE\TRIMETHOPRIM
  10. BENDAMUSTINE [Concomitant]
     Active Substance: BENDAMUSTINE
  11. DARZALEX [Concomitant]
     Active Substance: DARATUMUMAB
  12. DEXAMETHASONE [Concomitant]
     Active Substance: DEXAMETHASONE
  13. DIFLUCAN [Concomitant]
     Active Substance: FLUCONAZOLE
  14. ELIQUIS [Concomitant]
     Active Substance: APIXABAN
  15. FLOMAX [Concomitant]
     Active Substance: TAMSULOSIN HYDROCHLORIDE
  16. LASIX [Concomitant]
     Active Substance: FUROSEMIDE
  17. GABAPENTIN [Concomitant]
     Active Substance: GABAPENTIN
  18. GENTAMICIN [Concomitant]
     Active Substance: GENTAMICIN
  19. GLIPIZIDE [Concomitant]
     Active Substance: GLIPIZIDE
  20. HYDRALAZINE [Concomitant]
     Active Substance: HYDRALAZINE HYDROCHLORIDE
  21. LENALIDOMIDE [Concomitant]
     Active Substance: LENALIDOMIDE
  22. LIDODERM [Concomitant]
     Active Substance: LIDOCAINE
  23. LORAZEPAM [Concomitant]
     Active Substance: LORAZEPAM
  24. LOSARTAN [Concomitant]
     Active Substance: LOSARTAN
  25. LYRICA [Concomitant]
     Active Substance: PREGABALIN
  26. METFORMIN [Concomitant]
     Active Substance: METFORMIN HYDROCHLORIDE
  27. METOPROLOL SUCCINATE [Concomitant]
     Active Substance: METOPROLOL SUCCINATE
  28. MS CONTIN [Concomitant]
     Active Substance: MORPHINE SULFATE
  29. NABUMETONE [Concomitant]
     Active Substance: NABUMETONE
  30. OMEPRAZOLE [Concomitant]
     Active Substance: OMEPRAZOLE
  31. OXYCODONE [Concomitant]
     Active Substance: OXYCODONE
  32. OXYCONTIN [Concomitant]
     Active Substance: OXYCODONE HYDROCHLORIDE
  33. PANTOPRAZOLE [Concomitant]
     Active Substance: PANTOPRAZOLE
  34. PERCOCET [Concomitant]
     Active Substance: ACETAMINOPHEN\OXYCODONE HYDROCHLORIDE
  35. POMALYST [Concomitant]
     Active Substance: POMALIDOMIDE
  36. PROCHLORPERAZINE [Concomitant]
     Active Substance: PROCHLORPERAZINE
  37. SINGULAIR [Concomitant]
     Active Substance: MONTELUKAST SODIUM
  38. TEMAZEPAM [Concomitant]
     Active Substance: TEMAZEPAM
  39. VIVIMUSTA [Concomitant]
     Active Substance: BENDAMUSTINE HYDROCHLORIDE
  40. VALIUM [Concomitant]
     Active Substance: DIAZEPAM
  41. TRAMADOL [Concomitant]
     Active Substance: TRAMADOL
  42. PREGABALIN [Concomitant]
     Active Substance: PREGABALIN
  43. ACETAMINOPHEN AND CODEINE [Concomitant]
     Active Substance: ACETAMINOPHEN\CODEINE PHOSPHATE

REACTIONS (3)
  - Vomiting [Unknown]
  - Diarrhoea [Unknown]
  - Product dose omission issue [Unknown]

NARRATIVE: CASE EVENT DATE: 20250101
